FAERS Safety Report 4804012-5 (Version None)
Quarter: 2005Q4

REPORT INFORMATION
  Report Type: 
  Country: None (occurrence: None)
  Receive Date: 20051014
  Receipt Date: 20050422
  Transmission Date: 20060501
  Serious: Yes (Other)
  Sender: FDA-Public Use
  Company Number: PHEH2005US04657

PATIENT
  Age: 72 Year
  Sex: Male

DRUGS (7)
  1. LOPRESSOR [Suspect]
     Indication: HYPERTENSION
     Dates: end: 20050401
  2. LEXAPRO [Concomitant]
  3. KLONOPIN [Concomitant]
  4. ALTACE [Concomitant]
  5. HYTRIN [Concomitant]
  6. AMLODIPINE [Concomitant]
  7. DIURETICS (NO INGREDIENTS/SUBSTANCES) [Concomitant]

REACTIONS (3)
  - DEPRESSION [None]
  - FATIGUE [None]
  - HEART RATE DECREASED [None]
